FAERS Safety Report 14990397 (Version 2)
Quarter: 2018Q2

REPORT INFORMATION
  Report Type: Spontaneous
  Country: JP (occurrence: JP)
  Receive Date: 20180608
  Receipt Date: 20180618
  Transmission Date: 20180711
  Serious: Yes (Death, Life-Threatening, Other)
  Sender: FDA-Public Use
  Company Number: JP-009507513-1806JPN000182J

PATIENT
  Age: 86 Year
  Sex: Female

DRUGS (1)
  1. KEYTRUDA [Suspect]
     Active Substance: PEMBROLIZUMAB
     Indication: BLADDER TRANSITIONAL CELL CARCINOMA
     Dosage: 200 MG, Q3W
     Route: 041
     Dates: start: 20180525, end: 20180525

REACTIONS (2)
  - Death [Fatal]
  - Liver disorder [Not Recovered/Not Resolved]

NARRATIVE: CASE EVENT DATE: 201805
